FAERS Safety Report 22022472 (Version 1)
Quarter: 2023Q1

REPORT INFORMATION
  Report Type: Spontaneous
  Country: CN (occurrence: CN)
  Receive Date: 20230222
  Receipt Date: 20230222
  Transmission Date: 20230417
  Serious: Yes (Life-Threatening, Hospitalization, Other)
  Sender: FDA-Public Use
  Company Number: CN-PFIZER INC-PV202300032631

PATIENT
  Age: 98 Year
  Sex: Male

DRUGS (2)
  1. ZYVOX [Suspect]
     Active Substance: LINEZOLID
     Indication: Anti-infective therapy
     Dosage: 600 MG, QD (ONCE A DAY)
     Route: 048
     Dates: start: 20230130, end: 20230213
  2. ZYVOX [Suspect]
     Active Substance: LINEZOLID
     Indication: Pneumonia

REACTIONS (2)
  - Blood lactic acid increased [Recovering/Resolving]
  - Off label use [Unknown]

NARRATIVE: CASE EVENT DATE: 20230130
